FAERS Safety Report 6779751-X (Version None)
Quarter: 2010Q2

REPORT INFORMATION
  Report Type: 
  Country: None (occurrence: None)
  Receive Date: 20100618
  Receipt Date: 20100609
  Transmission Date: 20101027
  Serious: No
  Sender: FDA-Public Use
  Company Number: US-JNJFOC-20100603391

PATIENT
  Sex: Female
  Weight: 88.45 kg

DRUGS (13)
  1. SANDOZ FENTANYL TRANSDERMAL SYSTEM [Suspect]
     Indication: BACK PAIN
     Route: 062
  2. SANDOZ FENTANYL TRANSDERMAL SYSTEM [Suspect]
     Route: 062
  3. PERCOCET [Concomitant]
     Indication: PAIN
     Route: 048
  4. METFORMIN [Concomitant]
     Indication: DIABETES MELLITUS
     Route: 048
  5. LISINOPRIL [Concomitant]
     Indication: HYPERTENSION
     Route: 048
  6. ASPIRIN [Concomitant]
     Indication: CARDIAC DISORDER
     Route: 048
  7. NEURONTIN [Concomitant]
     Indication: NEUROPATHY PERIPHERAL
     Route: 048
  8. TRAZODONE HYDROCHLORIDE [Concomitant]
     Indication: SLEEP DISORDER
     Route: 048
  9. PROZAC [Concomitant]
     Indication: DEPRESSION
     Route: 048
  10. ZOCOR [Concomitant]
     Indication: BLOOD CHOLESTEROL INCREASED
     Route: 048
  11. POTASSIUM [Concomitant]
     Indication: ELECTROLYTE SUBSTITUTION THERAPY
     Route: 048
  12. LASIX [Concomitant]
     Indication: SWELLING
     Route: 048
  13. MIRAPEX [Concomitant]
     Indication: MUSCLE SPASMS
     Route: 048

REACTIONS (6)
  - DEVICE LEAKAGE [None]
  - DRUG INEFFECTIVE [None]
  - FEELING ABNORMAL [None]
  - MEMORY IMPAIRMENT [None]
  - PRODUCT ADHESION ISSUE [None]
  - WRONG TECHNIQUE IN DRUG USAGE PROCESS [None]
